FAERS Safety Report 4411901-2 (Version None)
Quarter: 2004Q3

REPORT INFORMATION
  Report Type: 
  Country: None (occurrence: None)
  Receive Date: 20040730
  Receipt Date: 20031202
  Transmission Date: 20050211
  Serious: No
  Sender: FDA-Public Use
  Company Number: US-GLAXOSMITHKLINE-A0441630A

PATIENT
  Age: 90 Year
  Sex: Female

DRUGS (8)
  1. ZANTAC [Suspect]
     Indication: ILL-DEFINED DISORDER
     Dosage: 150MG TWICE PER DAY
     Route: 048
     Dates: start: 19990501
  2. FOSAMAX [Concomitant]
  3. CELEXA [Concomitant]
  4. CORDARONE [Concomitant]
  5. MIACALCIN [Concomitant]
  6. VIOXX [Concomitant]
  7. PRINIVIL [Concomitant]
  8. TIMOLOL OPHTHALMIC [Concomitant]

REACTIONS (1)
  - HALLUCINATION [None]
